FAERS Safety Report 6403144-8 (Version None)
Quarter: 2009Q4

REPORT INFORMATION
  Report Type: 
  Country: None (occurrence: None)
  Receive Date: 20091015
  Receipt Date: 20091015
  Transmission Date: 20100525
  Serious: Yes (Other)
  Sender: FDA-Public Use
  Company Number: None

PATIENT
  Age: 55 Year
  Sex: Female

DRUGS (1)
  1. SUTENT [Suspect]
     Indication: HYPOCALCAEMIA
     Dosage: 50 MG PER DAY FOR 30 DAYS

REACTIONS (8)
  - ABDOMINAL PAIN [None]
  - BACK PAIN [None]
  - BURNING SENSATION [None]
  - FEELING ABNORMAL [None]
  - GLOSSODYNIA [None]
  - HEADACHE [None]
  - NECK PAIN [None]
  - ORAL PAIN [None]
